FAERS Safety Report 10354488 (Version 1)
Quarter: 2014Q3

REPORT INFORMATION
  Report Type: Spontaneous
  Country: PT (occurrence: PT)
  Receive Date: 20140731
  Receipt Date: 20140731
  Transmission Date: 20150326
  Serious: Yes (Other)
  Sender: FDA-Public Use
  Company Number: PHHY2014PT092599

PATIENT
  Age: 85 Year
  Sex: Male

DRUGS (7)
  1. EXELON PATCH [Suspect]
     Active Substance: RIVASTIGMINE
     Indication: DEMENTIA
     Dosage: 9.5 MG, (10 CM2) DAILY
     Route: 062
     Dates: end: 201407
  2. EXELON PATCH [Suspect]
     Active Substance: RIVASTIGMINE
     Dosage: 13.3 MG, (15 CM2)  DAILY
     Route: 062
     Dates: start: 201407, end: 20140725
  3. SERTRALINE [Concomitant]
     Active Substance: SERTRALINE HYDROCHLORIDE
     Dosage: 50 MG, QD
  4. EXELON PATCH [Suspect]
     Active Substance: RIVASTIGMINE
     Dosage: 9.5 MG, (10 CM2) DAILY
     Route: 062
     Dates: start: 20140726
  5. SEROQUEL [Concomitant]
     Active Substance: QUETIAPINE FUMARATE
     Dosage: 100 MG, QD
  6. ATARAX                                  /POR/ [Concomitant]
     Dosage: UNK UKN, QD (AT NIGHT)
  7. MIRTAZAPINE. [Concomitant]
     Active Substance: MIRTAZAPINE
     Dosage: 0.5 DF, QD (15 MG)

REACTIONS (2)
  - Deafness [Recovered/Resolved]
  - Cough [Unknown]

NARRATIVE: CASE EVENT DATE: 20140724
